FAERS Safety Report 7466934-9 (Version None)
Quarter: 2011Q2

REPORT INFORMATION
  Report Type: 
  Country: None (occurrence: None)
  Receive Date: 20110509
  Receipt Date: 20110404
  Transmission Date: 20111010
  Serious: Yes (Hospitalization)
  Sender: FDA-Public Use
  Company Number: US-BAYER-201020938NA

PATIENT
  Age: 31 Year
  Sex: Female
  Weight: 68 kg

DRUGS (8)
  1. VITAMIN C [Concomitant]
     Dosage: UNK
     Dates: start: 20000101
  2. YAZ [Suspect]
     Indication: CONTRACEPTION
     Dosage: UNK UNK, UNK
     Route: 048
     Dates: start: 20050601, end: 20070401
  3. LEVAQUIN [Concomitant]
  4. SYNTHROID [Concomitant]
     Dosage: UNK
     Dates: start: 20050101
  5. SINGULAIR [Concomitant]
  6. ALBUTEROL [Concomitant]
     Dosage: UNK
     Route: 045
     Dates: start: 20000101
  7. CYTOMEL [Concomitant]
  8. YASMIN [Suspect]
     Indication: CONTRACEPTION
     Dosage: UNK
     Dates: start: 20050601, end: 20070401

REACTIONS (3)
  - PAIN [None]
  - CHOLECYSTITIS [None]
  - GALLBLADDER NON-FUNCTIONING [None]
